FAERS Safety Report 23812386 (Version 2)
Quarter: 2024Q4

REPORT INFORMATION
  Report Type: Report from Study
  Country: VN (occurrence: VN)
  Receive Date: 20240503
  Receipt Date: 20241127
  Transmission Date: 20250115
  Serious: Yes (Hospitalization, Other)
  Sender: SANDOZ
  Company Number: VN-SANDOZ-NVSC2022VN293672

PATIENT
  Age: 57 Year
  Sex: Male
  Weight: 53 kg

DRUGS (26)
  1. BEDAQUILINE [Suspect]
     Active Substance: BEDAQUILINE
     Indication: Tuberculosis
     Dosage: 200 MG/100 MG
     Route: 048
     Dates: start: 20221202
  2. BEDAQUILINE [Suspect]
     Active Substance: BEDAQUILINE
     Dosage: 200 MG/100 MG
     Route: 048
     Dates: start: 20221227
  3. BEDAQUILINE [Suspect]
     Active Substance: BEDAQUILINE
     Dosage: 200 MG/100 MG
     Route: 048
     Dates: start: 20230106, end: 20230107
  4. BEDAQUILINE [Suspect]
     Active Substance: BEDAQUILINE
     Dosage: 200 MG/100 MG
     Route: 048
     Dates: start: 20230317
  5. CLOFAZIMINE [Suspect]
     Active Substance: CLOFAZIMINE
     Indication: Tuberculosis
     Dosage: 100 MG/100 MG
     Route: 048
     Dates: start: 20221227
  6. CLOFAZIMINE [Suspect]
     Active Substance: CLOFAZIMINE
     Dosage: 100 MG/100 MG
     Route: 048
     Dates: start: 20221202, end: 20221216
  7. CLOFAZIMINE [Suspect]
     Active Substance: CLOFAZIMINE
     Dosage: 100 MG/100 MG
     Route: 048
     Dates: start: 20230106, end: 20230107
  8. CLOFAZIMINE [Suspect]
     Active Substance: CLOFAZIMINE
     Dosage: 100 MG/100 MG
     Route: 048
     Dates: start: 20230317
  9. DELAMANID [Suspect]
     Active Substance: DELAMANID
     Indication: Tuberculosis
     Dosage: 300MG/50 MG
     Route: 048
     Dates: start: 20230106, end: 20230107
  10. DELAMANID [Suspect]
     Active Substance: DELAMANID
     Dosage: 300MG/50 MG
     Route: 048
     Dates: start: 20221202, end: 20221216
  11. DELAMANID [Suspect]
     Active Substance: DELAMANID
     Dosage: 300MG/50 MG
     Route: 048
     Dates: start: 20221227
  12. DELAMANID [Suspect]
     Active Substance: DELAMANID
     Dosage: 300MG/50 MG
     Route: 048
     Dates: start: 20230317
  13. LEVOFLOXACIN [Suspect]
     Active Substance: LEVOFLOXACIN
     Indication: Tuberculosis
     Dosage: 1000MG/250MG
     Route: 048
     Dates: start: 20221202, end: 20221216
  14. LEVOFLOXACIN [Suspect]
     Active Substance: LEVOFLOXACIN
     Dosage: 1000MG/250MG
     Route: 048
     Dates: start: 20221227
  15. LEVOFLOXACIN [Suspect]
     Active Substance: LEVOFLOXACIN
     Dosage: 1000MG/250MG
     Route: 048
     Dates: start: 20230106
  16. LEVOFLOXACIN [Suspect]
     Active Substance: LEVOFLOXACIN
     Dosage: 1000MG/250MG
     Route: 048
     Dates: start: 20230107
  17. LEVOFLOXACIN [Suspect]
     Active Substance: LEVOFLOXACIN
     Dosage: 1000MG/250MG, (DOSE NUMBER: 105)
     Route: 048
     Dates: start: 20230317
  18. LEVOFLOXACIN [Suspect]
     Active Substance: LEVOFLOXACIN
     Dosage: UNK
     Route: 065
     Dates: start: 20230908
  19. LINEZOLID [Suspect]
     Active Substance: LINEZOLID
     Indication: Tuberculosis
     Dosage: 1200MG/600MG
     Route: 048
     Dates: start: 20221202, end: 20221216
  20. LINEZOLID [Suspect]
     Active Substance: LINEZOLID
     Dosage: 300MG/600MG
     Route: 048
     Dates: start: 20221227
  21. LINEZOLID [Suspect]
     Active Substance: LINEZOLID
     Dosage: 300MG/600MG (DOSE NUMBER: 56)
     Route: 048
     Dates: start: 20230313
  22. LINEZOLID [Suspect]
     Active Substance: LINEZOLID
     Dosage: 300MG/600MGNK
     Route: 048
     Dates: start: 20230104, end: 20230105
  23. LINEZOLID [Suspect]
     Active Substance: LINEZOLID
     Dosage: 300MG/600MGNK
     Route: 048
     Dates: start: 20230220
  24. ACTRAPID [Concomitant]
     Active Substance: INSULIN HUMAN
     Indication: Product used for unknown indication
     Dosage: 30 IU, QD
     Route: 065
     Dates: start: 202202
  25. LANTUS [Concomitant]
     Active Substance: INSULIN GLARGINE
     Indication: Product used for unknown indication
     Dosage: 20 IU, QD (DAILY)
     Route: 065
     Dates: start: 202202
  26. INSULIN HUMAN [Concomitant]
     Active Substance: INSULIN HUMAN
     Indication: Product used for unknown indication
     Dosage: UNK
     Route: 065
     Dates: start: 202202

REACTIONS (5)
  - Haemoptysis [Recovered/Resolved]
  - Haemoptysis [Recovered/Resolved]
  - Haemoptysis [Recovered/Resolved]
  - Hyperglycaemia [Recovered/Resolved]
  - Anaemia [Recovered/Resolved]

NARRATIVE: CASE EVENT DATE: 20221215
